FAERS Safety Report 9204557 (Version 1)
Quarter: 2013Q1

REPORT INFORMATION
  Report Type: Spontaneous
  Country: US (occurrence: None)
  Receive Date: 20120709
  Receipt Date: 20120709
  Transmission Date: 20140127
  Serious: No
  Sender: FDA-Public Use
  Company Number: 2012HGS-003482

PATIENT
  Age: 52 Year
  Sex: Female
  Weight: 104.33 kg

DRUGS (1)
  1. BENLYSTA [Suspect]
     Indication: SYSTEMIC LUPUS ERYTHEMATOSUS
     Dosage: 1 IN 28 D
     Route: 041
     Dates: start: 20120328

REACTIONS (6)
  - Renal function test abnormal [None]
  - Pancreatic enzyme abnormality [None]
  - Red blood cell count decreased [None]
  - Muscular weakness [None]
  - Dizziness [None]
  - Dyspnoea [None]
